FAERS Safety Report 22328021 (Version 2)
Quarter: 2024Q2

REPORT INFORMATION
  Report Type: Spontaneous
  Country: US (occurrence: US)
  Receive Date: 20230516
  Receipt Date: 20240531
  Transmission Date: 20240716
  Serious: No
  Sender: FDA-Public Use
  Company Number: US-RADIUS HEALTH INC.-2023US000481

PATIENT
  Age: 72 Year
  Sex: Female

DRUGS (4)
  1. TYMLOS [Suspect]
     Active Substance: ABALOPARATIDE
     Indication: Senile osteoporosis
     Dosage: 80 MCG, DAILY
     Route: 058
     Dates: start: 20230127
  2. TYMLOS [Suspect]
     Active Substance: ABALOPARATIDE
     Indication: Lumbar vertebral fracture
     Dosage: 60 MICROGRAM, QD
  3. TYMLOS [Suspect]
     Active Substance: ABALOPARATIDE
     Indication: Compression fracture
     Dosage: 70 MICROGRAM, QD
  4. TYMLOS [Suspect]
     Active Substance: ABALOPARATIDE
     Dosage: 80 MICROGRAM, QD
     Route: 058
     Dates: start: 202302

REACTIONS (7)
  - Dehydration [Unknown]
  - Headache [Unknown]
  - Nausea [Unknown]
  - Vomiting [Unknown]
  - Diarrhoea [Unknown]
  - Product dose omission issue [Unknown]
  - Intentional product misuse [Unknown]

NARRATIVE: CASE EVENT DATE: 20230130
